FAERS Safety Report 9905281 (Version 1)
Quarter: 2013Q2

REPORT INFORMATION
  Report Type: Spontaneous
  Country: US (occurrence: None)
  Receive Date: 20130305
  Receipt Date: 20130305
  Transmission Date: 20140414
  Serious: Yes (Disabling)
  Sender: FDA-Public Use
  Company Number: 163-21880-12030722

PATIENT
  Age: 71 Year
  Sex: Male
  Weight: 101.61 kg

DRUGS (9)
  1. REVLIMID (LENALIDOMIDE) (25 MILLIGRAM, CAPSULES) [Suspect]
     Indication: PLASMA CELL MYELOMA
     Route: 048
     Dates: start: 20120118, end: 2012
  2. PROCRIT (ERYTHROPOIETIN) [Concomitant]
  3. DEXAMETHASONE [Concomitant]
  4. CARVEDILOL [Concomitant]
  5. ASA (ACETYLSALICYLIC ACID) [Concomitant]
  6. GLYBURIDE (GLIBENCLAMIDE) [Concomitant]
  7. PLAVIX (CLOPIDOGREL SULFATE) [Concomitant]
  8. LIPITOR (ATORVASTATIN) [Concomitant]
  9. FLOMAX [Concomitant]

REACTIONS (1)
  - Renal impairment [None]
